FAERS Safety Report 7151354-7 (Version None)
Quarter: 2010Q4

REPORT INFORMATION
  Report Type: 
  Country: None (occurrence: None)
  Receive Date: 20101210
  Receipt Date: 20101202
  Transmission Date: 20110411
  Serious: Yes (Hospitalization)
  Sender: FDA-Public Use
  Company Number: FR-ASTRAZENECA-2010SE57418

PATIENT
  Age: 18969 Day
  Sex: Female

DRUGS (2)
  1. ZOMIGORO [Suspect]
     Dosage: SEVEN TO EIGHT FASTMELTS PER MONTH
     Route: 048
     Dates: start: 20091201
  2. AVLOCARDYL [Concomitant]
     Route: 048
     Dates: start: 20050101

REACTIONS (15)
  - ABDOMINAL PAIN LOWER [None]
  - ARTERY DISSECTION [None]
  - CHILLS [None]
  - DIARRHOEA [None]
  - EHLERS-DANLOS SYNDROME [None]
  - FIBROMUSCULAR DYSPLASIA [None]
  - HYPERTENSION [None]
  - LEUKOCYTOSIS [None]
  - MARFAN'S SYNDROME [None]
  - RASH MACULAR [None]
  - RENAL INFARCT [None]
  - RESPIRATORY RATE INCREASED [None]
  - TACHYCARDIA [None]
  - TRANSAMINASES INCREASED [None]
  - VOMITING [None]
